FAERS Safety Report 8844279 (Version 1)
Quarter: 2012Q4

REPORT INFORMATION
  Report Type: 
  Country: US (occurrence: US)
  Receive Date: 20121017
  Receipt Date: 20121017
  Transmission Date: 20130627
  Serious: Yes (Life-Threatening, Hospitalization)
  Sender: FDA-Public Use
  Company Number: US-SANOFI-AVENTIS-2012SA073759

PATIENT
  Age: 82 Year
  Sex: Male

DRUGS (3)
  1. LANTUS SOLOSTAR [Suspect]
     Indication: TYPE 2 DIABETES MELLITUS
     Dosage: 25-30 units daily
     Route: 058
  2. SOLOSTAR [Suspect]
     Indication: TYPE 2 DIABETES MELLITUS
  3. COUMADIN [Concomitant]
     Indication: CLOT BLOOD

REACTIONS (4)
  - Ulcer haemorrhage [Unknown]
  - Loss of consciousness [Unknown]
  - Thrombosis [Unknown]
  - Bronchitis [Unknown]
